FAERS Safety Report 8003776-X (Version None)
Quarter: 2011Q4

REPORT INFORMATION
  Report Type: 
  Country: None (occurrence: None)
  Receive Date: 20111222
  Receipt Date: 20111219
  Transmission Date: 20120403
  Serious: Yes (Hospitalization)
  Sender: FDA-Public Use
  Company Number: GB-US-EMD SERONO, INC.-7096148

PATIENT
  Sex: Male

DRUGS (6)
  1. REBIF [Suspect]
     Indication: RELAPSING-REMITTING MULTIPLE SCLEROSIS
     Route: 058
     Dates: start: 20111104
  2. CITALOPRAM [Concomitant]
  3. GABAPENTIN [Concomitant]
  4. SIMVASTATIN [Concomitant]
  5. REBIF [Suspect]
     Route: 058
  6. AMANTADINE HCL [Concomitant]

REACTIONS (1)
  - HEART RATE IRREGULAR [None]
